FAERS Safety Report 5851326 (Version 6)
Quarter: 2018Q4

REPORT INFORMATION
  Report Type: Spontaneous
  Country: US (occurrence: JP)
  Receive Date: 20050803
  Receipt Date: 20181116
  Transmission Date: 20190205
  Serious: Yes (Hospitalization)
  Sender: FDA-Public Use
  Company Number: PHBS2005JP10911

PATIENT
  Age: 47 Year
  Sex: Female

DRUGS (5)
  1. GLIVEC [Suspect]
     Active Substance: IMATINIB MESYLATE
     Dosage: 200 MG, QD
     Route: 048
     Dates: start: 200210
  2. GLIVEC [Suspect]
     Active Substance: IMATINIB MESYLATE
     Dosage: 2000 MG, ONCE/SINGLE
     Route: 048
     Dates: start: 20050725, end: 20050725
  3. LENDORMIN [Suspect]
     Active Substance: BROTIZOLAM
     Indication: PRODUCT USED FOR UNKNOWN INDICATION
     Dosage: 12.5 MG, ONCE/SINGLE
     Route: 048
     Dates: start: 20050725, end: 20050725
  4. GLIVEC [Suspect]
     Active Substance: IMATINIB MESYLATE
     Indication: CHRONIC MYELOID LEUKAEMIA
     Dosage: 400 MG, QD
     Route: 048
     Dates: start: 200201, end: 200210
  5. HALCION [Suspect]
     Active Substance: TRIAZOLAM
     Indication: PRODUCT USED FOR UNKNOWN INDICATION
     Dosage: 3.5 MG, ONCE/SINGLE
     Route: 048
     Dates: start: 20050725, end: 20050725

REACTIONS (10)
  - Suicide attempt [Recovering/Resolving]
  - Nausea [Unknown]
  - Muscle spasms [Recovered/Resolved]
  - Blood creatine phosphokinase increased [Recovering/Resolving]
  - Intentional overdose [Recovering/Resolving]
  - Coma [Recovered/Resolved]
  - Oedema [Unknown]
  - Depression [Recovering/Resolving]
  - Depressed level of consciousness [Recovering/Resolving]
  - Myalgia [Unknown]

NARRATIVE: CASE EVENT DATE: 2002
